FAERS Safety Report 8008094-1 (Version None)
Quarter: 2011Q4

REPORT INFORMATION
  Report Type: 
  Country: None (occurrence: None)
  Receive Date: 20111227
  Receipt Date: 20111221
  Transmission Date: 20120403
  Serious: Yes (Hospitalization, Other)
  Sender: FDA-Public Use
  Company Number: PHHY2011DE111754

PATIENT
  Age: 45 Year
  Sex: Female

DRUGS (3)
  1. HEPARIN [Concomitant]
     Dosage: UNK UKN, UNK
  2. GILENYA [Suspect]
     Indication: MULTIPLE SCLEROSIS
     Dosage: 0.5 MG, QD
     Route: 048
  3. ANESTHETICS [Concomitant]
     Indication: SURGERY
     Dosage: UNK UKN, UNK

REACTIONS (2)
  - HEPATIC ENZYME INCREASED [None]
  - LOWER LIMB FRACTURE [None]
